FAERS Safety Report 9230765 (Version 5)
Quarter: 2018Q1

REPORT INFORMATION
  Report Type: Report from Study
  Country: US (occurrence: US)
  Receive Date: 20130415
  Receipt Date: 20180212
  Transmission Date: 20180509
  Serious: Yes (Other)
  Sender: FDA-Public Use
  Company Number: US-ROCHE-1072502

PATIENT

DRUGS (5)
  1. CYCLOPHOSPHAMIDE. [Suspect]
     Active Substance: CYCLOPHOSPHAMIDE
     Indication: B-CELL LYMPHOMA
     Route: 065
  2. RITUXIMAB. [Suspect]
     Active Substance: RITUXIMAB
     Indication: B-CELL LYMPHOMA
     Dosage: DAY 1 OF 28 DAYS CYCLE
     Route: 042
  3. ASA [Concomitant]
     Active Substance: ASPIRIN
     Route: 065
  4. LENALIDOMIDE [Suspect]
     Active Substance: LENALIDOMIDE
     Indication: B-CELL LYMPHOMA
     Route: 048
  5. DEXAMETHASONE. [Suspect]
     Active Substance: DEXAMETHASONE
     Indication: B-CELL LYMPHOMA
     Route: 065

REACTIONS (14)
  - Neutropenia [Unknown]
  - Leukopenia [Unknown]
  - Malignant melanoma [Unknown]
  - Breast cancer [Unknown]
  - Myelodysplastic syndrome [Unknown]
  - Anaemia [Unknown]
  - Pneumonia [Unknown]
  - Pulmonary embolism [Unknown]
  - Deep vein thrombosis [Unknown]
  - Fatigue [Unknown]
  - Thrombocytopenia [Unknown]
  - Rash [Unknown]
  - Skin cancer [Unknown]
  - Febrile neutropenia [Unknown]
